FAERS Safety Report 6834864-9 (Version None)
Quarter: 2010Q3

REPORT INFORMATION
  Report Type: 
  Country: None (occurrence: None)
  Receive Date: 20100712
  Receipt Date: 20070423
  Transmission Date: 20110219
  Serious: No
  Sender: FDA-Public Use
  Company Number: US-PFIZER INC-2007033811

PATIENT
  Age: 42 Year
  Sex: Female
  Weight: 56.7 kg

DRUGS (6)
  1. CHANTIX [Suspect]
     Indication: SMOKING CESSATION THERAPY
     Dates: start: 20070401
  2. METFORMIN HCL [Concomitant]
  3. LISINOPRIL [Concomitant]
  4. ACETYLSALICYLIC ACID [Concomitant]
  5. CARISOPRODOL [Concomitant]
  6. ANALGESICS [Concomitant]

REACTIONS (5)
  - ABDOMINAL PAIN UPPER [None]
  - ABNORMAL DREAMS [None]
  - ABNORMAL FAECES [None]
  - CONSTIPATION [None]
  - FLATULENCE [None]
